FAERS Safety Report 25721864 (Version 1)
Quarter: 2025Q3

REPORT INFORMATION
  Report Type: Spontaneous
  Country: US (occurrence: US)
  Receive Date: 20250825
  Receipt Date: 20250825
  Transmission Date: 20251021
  Serious: Yes (Other)
  Sender: ASTELLAS
  Company Number: US-ASTELLAS-2025-AER-035454

PATIENT
  Age: 73 Year
  Sex: Female

DRUGS (2)
  1. PADCEV [Suspect]
     Active Substance: ENFORTUMAB VEDOTIN-EJFV
     Indication: Bladder cancer stage IV
     Route: 042
     Dates: start: 20240913
  2. KEYTRUDA [Suspect]
     Active Substance: PEMBROLIZUMAB
     Indication: Bladder cancer stage IV
     Route: 065
     Dates: start: 20240913

REACTIONS (5)
  - Dyspnoea [Unknown]
  - Gastrooesophageal reflux disease [Unknown]
  - Stomatitis [Recovered/Resolved]
  - Genital ulceration [Recovered/Resolved]
  - Rash [Recovered/Resolved]
